FAERS Safety Report 10201596 (Version 1)
Quarter: 2014Q2

REPORT INFORMATION
  Report Type: Spontaneous
  Country: GB (occurrence: GB)
  Receive Date: 20140528
  Receipt Date: 20140528
  Transmission Date: 20141212
  Serious: Yes (Disabling)
  Sender: FDA-Public Use
  Company Number: GB-EISAI INC-E2007-01687-SPO-GB

PATIENT
  Age: 46 Year
  Sex: Male

DRUGS (1)
  1. FYCOMPA (PERAMPANEL) [Suspect]
     Indication: EPILEPSY
     Dosage: UNKNOWN
     Route: 048
     Dates: start: 201309, end: 201402

REACTIONS (3)
  - Cyanosis [Recovering/Resolving]
  - Skin ulcer [Recovering/Resolving]
  - Peripheral swelling [Recovering/Resolving]
